FAERS Safety Report 9654156 (Version 2)
Quarter: 2015Q1

REPORT INFORMATION
  Report Type: Spontaneous
  Country: US (occurrence: None)
  Receive Date: 20131028
  Receipt Date: 20150323
  Transmission Date: 20150721
  Serious: Yes (Death, Hospitalization)
  Sender: FDA-Public Use
  Company Number: 201310-US-001499

PATIENT
  Age: 46 Year
  Sex: Male
  Weight: 94 kg

DRUGS (9)
  1. FLEET NOS [Suspect]
     Active Substance: BISACODYL OR GLYCERIN OR MINERAL OIL OR SODIUM PHOSPHATE, DIBASIC\SODIUM PHOSPHATE, MONOBASIC
     Indication: CONSTIPATION
     Dosage: 1 EVERY 2 HOURS UNTIL MIDNIGHT, 6 IN 24 HOURS
     Route: 054
     Dates: start: 20121203, end: 20121203
  2. AMIODARONE (AMIODARONE) [Concomitant]
     Active Substance: AMIODARONE
  3. SOAP ENEMA (SOFT SOAP) [Suspect]
     Active Substance: SOAP
     Indication: CONSTIPATION
     Dosage: SOAP SUDS ENEMA TO ALTERNATE WITH PHOSPHO-SODA ENEMAS EVERY 2 HOURS, 3 IN 24 HOURS
     Route: 054
     Dates: start: 20121203, end: 20121203
  4. LACTOLOSE (LACTULOSE) [Concomitant]
  5. MIRALAX [Concomitant]
     Active Substance: POLYETHYLENE GLYCOL 3350
  6. SENNA [Concomitant]
     Active Substance: SENNA LEAF\SENNOSIDES\SENNOSIDES A AND B
  7. MORPHINE SA (MORPHINE) [Concomitant]
  8. OXICODONE [Concomitant]
  9. COLACE [Concomitant]
     Active Substance: DOCUSATE SODIUM

REACTIONS (22)
  - Cardiac arrest [None]
  - Blood glucose increased [None]
  - Unresponsive to stimuli [None]
  - Acute kidney injury [None]
  - Alanine aminotransferase increased [None]
  - Labelled drug-disease interaction medication error [None]
  - Pulseless electrical activity [None]
  - Hyperphosphataemia [None]
  - Leukocytosis [None]
  - Metabolic acidosis [None]
  - Constipation [None]
  - Drug prescribing error [None]
  - Off label use [None]
  - Ventricular tachycardia [None]
  - Blood lactate dehydrogenase increased [None]
  - Blood alkaline phosphatase increased [None]
  - Back pain [None]
  - Fatigue [None]
  - Confusional state [None]
  - Bradycardia [None]
  - Hypocalcaemia [None]
  - Overdose [None]
